FAERS Safety Report 6731911-X (Version None)
Quarter: 2010Q2

REPORT INFORMATION
  Report Type: 
  Country: None (occurrence: None)
  Receive Date: 20100519
  Receipt Date: 20100505
  Transmission Date: 20101027
  Serious: Yes (Other)
  Sender: FDA-Public Use
  Company Number: US-JNJFOC-20100504141

PATIENT
  Age: 5 Year
  Sex: Female
  Weight: 21.77 kg

DRUGS (9)
  1. CHILDREN'S TYLENOL PLUS COUGH + SORE THROAT CHERRY [Suspect]
     Indication: PHARYNGITIS STREPTOCOCCAL
     Route: 048
  2. CHILDREN'S TYLENOL PLUS COUGH + SORE THROAT CHERRY [Suspect]
     Indication: COUGH
     Route: 048
  3. CHILDREN'S TYLENOL PLUS COUGH + SORE THROAT CHERRY [Suspect]
     Indication: PYREXIA
     Route: 048
  4. CHILDREN'S TYLENOL LIQUID BUBBLEGUM [Suspect]
     Indication: PHARYNGITIS STREPTOCOCCAL
     Route: 048
  5. CHILDREN'S TYLENOL LIQUID BUBBLEGUM [Suspect]
     Indication: COUGH
     Route: 048
  6. CHILDREN'S TYLENOL LIQUID BUBBLEGUM [Suspect]
     Indication: PYREXIA
     Route: 048
  7. CHILDREN'S TYLENOL LIQUID CHERRY [Suspect]
     Indication: PHARYNGITIS STREPTOCOCCAL
     Route: 048
  8. CHILDREN'S TYLENOL LIQUID CHERRY [Suspect]
     Indication: COUGH
     Route: 048
  9. CHILDREN'S TYLENOL LIQUID CHERRY [Suspect]
     Indication: PYREXIA
     Route: 048

REACTIONS (3)
  - PNEUMONIA [None]
  - PRODUCT CONTAMINATION PHYSICAL [None]
  - PYREXIA [None]
